FAERS Safety Report 24210373 (Version 1)
Quarter: 2024Q3

REPORT INFORMATION
  Report Type: Spontaneous
  Country: IN (occurrence: IN)
  Receive Date: 20240814
  Receipt Date: 20240814
  Transmission Date: 20241016
  Serious: Yes (Other)
  Sender: GLAND PHARMA
  Company Number: IN-GLANDPHARMA-IN-2024GLNLIT00617

PATIENT

DRUGS (1)
  1. FLUOROURACIL [Suspect]
     Active Substance: FLUOROURACIL
     Indication: Ocular surface squamous neoplasia

REACTIONS (2)
  - Punctate keratitis [Recovered/Resolved]
  - Product use in unapproved indication [Unknown]
